FAERS Safety Report 22336906 (Version 1)
Quarter: 2023Q2

REPORT INFORMATION
  Report Type: Spontaneous
  Country: US (occurrence: US)
  Receive Date: 20230518
  Receipt Date: 20230518
  Transmission Date: 20230722
  Serious: Yes (Other)
  Sender: FDA-Public Use
  Company Number: US-CIPLA LTD.-2023US02557

PATIENT

DRUGS (3)
  1. FENOFIBRATE [Suspect]
     Active Substance: FENOFIBRATE
     Dosage: 160 MILLIGRAM, QD AT 32 WEEKS 6 DAYS
     Route: 064
  2. URSODIOL [Suspect]
     Active Substance: URSODIOL
     Dosage: 300 MILLIGRAM, TID AT 19 WEEKS 4 DAYS
     Route: 064
  3. URSODIOL [Suspect]
     Active Substance: URSODIOL
     Dosage: 500 MILLIGRAM, TID AT 31 WEEKS 0 DAYS
     Route: 064

REACTIONS (3)
  - Premature baby [Unknown]
  - Low birth weight baby [Unknown]
  - Foetal exposure during pregnancy [Unknown]
